FAERS Safety Report 5192102-X (Version None)
Quarter: 2006Q4

REPORT INFORMATION
  Report Type: 
  Country: None (occurrence: None)
  Receive Date: 20061220
  Receipt Date: 20061204
  Transmission Date: 20070319
  Serious: Yes (Other)
  Sender: FDA-Public Use
  Company Number: US-2006-035469

PATIENT
  Age: 44 Year
  Sex: Female

DRUGS (5)
  1. BETASERON [Suspect]
     Indication: PRIMARY PROGRESSIVE MULTIPLE SCLEROSIS
     Dosage: 8 MIU, EVERY 2D, SUBCUTANEOUS
     Route: 058
     Dates: start: 20060714
  2. NEURONTIN [Concomitant]
  3. MEGACE [Concomitant]
  4. KLONOPIN [Concomitant]
  5. BACLOFEN [Concomitant]

REACTIONS (9)
  - ABDOMINAL DISTENSION [None]
  - ASTHENIA [None]
  - BALANCE DISORDER [None]
  - DYSSTASIA [None]
  - ERYTHEMA [None]
  - LIMB INJURY [None]
  - LOCALISED INFECTION [None]
  - OEDEMA PERIPHERAL [None]
  - SKIN LACERATION [None]
